FAERS Safety Report 21788086 (Version 4)
Quarter: 2023Q2

REPORT INFORMATION
  Report Type: Report from Study
  Country: US (occurrence: US)
  Receive Date: 20221228
  Receipt Date: 20230408
  Transmission Date: 20230722
  Serious: No
  Sender: FDA-Public Use
  Company Number: US-002147023-NVSC2022US299788

PATIENT
  Sex: Female

DRUGS (1)
  1. ENOXAPARIN SODIUM [Suspect]
     Active Substance: ENOXAPARIN SODIUM
     Indication: Surgery
     Dosage: 40 MG (SPRAY)
     Route: 065

REACTIONS (5)
  - Rash [Unknown]
  - Skin exfoliation [Unknown]
  - Sensitive skin [Unknown]
  - Tenderness [Unknown]
  - Product use in unapproved indication [Unknown]
